FAERS Safety Report 4890640-8 (Version None)
Quarter: 2006Q1

REPORT INFORMATION
  Report Type: 
  Country: None (occurrence: None)
  Receive Date: 20060125
  Receipt Date: 20050217
  Transmission Date: 20060701
  Serious: No
  Sender: FDA-Public Use
  Company Number: PR-BRISTOL-MYERS SQUIBB COMPANY-12869236

PATIENT

DRUGS (1)
  1. CARDIOLITE [Suspect]
     Dates: start: 20050217, end: 20050217

REACTIONS (1)
  - CHEILITIS [None]
